FAERS Safety Report 21540007 (Version 6)
Quarter: 2024Q2

REPORT INFORMATION
  Report Type: Other
  Country: CA (occurrence: None)
  Receive Date: 20221102
  Receipt Date: 20240603
  Transmission Date: 20240716
  Serious: Yes (Other)
  Sender: FDA-Public Use
  Company Number: CA-ROCHE-3193991

PATIENT
  Age: 27 Year
  Sex: Female

DRUGS (3)
  1. OCREVUS [Suspect]
     Active Substance: OCRELIZUMAB
     Indication: Relapsing-remitting multiple sclerosis
     Dosage: 300 MG AT DAY 0 AND 14, THEN 600 MG EVERY 6 MONTH
     Route: 042
     Dates: start: 20220329
  2. AMOXICILLIN [Concomitant]
     Active Substance: AMOXICILLIN
  3. PREGABALIN [Concomitant]
     Active Substance: PREGABALIN

REACTIONS (13)
  - Pneumonia [Unknown]
  - Nasopharyngitis [Unknown]
  - Lower respiratory tract infection [Unknown]
  - Aphonia [Unknown]
  - Dry skin [Not Recovered/Not Resolved]
  - Nasal congestion [Not Recovered/Not Resolved]
  - Skin laceration [Not Recovered/Not Resolved]
  - Urinary tract infection [Unknown]
  - Sluggishness [Not Recovered/Not Resolved]
  - Irritable bowel syndrome [Unknown]
  - Anxiety [Not Recovered/Not Resolved]
  - Trichorrhexis [Not Recovered/Not Resolved]
  - Post-traumatic stress disorder [Unknown]

NARRATIVE: CASE EVENT DATE: 20220902
